FAERS Safety Report 23940614 (Version 1)
Quarter: 2024Q2

REPORT INFORMATION
  Report Type: Spontaneous
  Country: BE (occurrence: BE)
  Receive Date: 20240605
  Receipt Date: 20240605
  Transmission Date: 20240715
  Serious: Yes (Other)
  Sender: FDA-Public Use
  Company Number: BE-ALKEM LABORATORIES LIMITED-BE-ALKEM-2024-03845

PATIENT
  Age: 32 Year
  Sex: Male

DRUGS (2)
  1. CEFTAZIDIME [Suspect]
     Active Substance: CEFTAZIDIME
     Indication: Mycobacterium fortuitum infection
     Dosage: UNK
     Route: 065
  2. VANCOMYCIN [Suspect]
     Active Substance: VANCOMYCIN
     Indication: Mycobacterium fortuitum infection
     Dosage: UNK
     Route: 065

REACTIONS (1)
  - Acute kidney injury [Unknown]
